FAERS Safety Report 11346159 (Version 1)
Quarter: 2015Q3

REPORT INFORMATION
  Report Type: Spontaneous
  Country: US (occurrence: US)
  Receive Date: 20150803
  Receipt Date: 20150803
  Transmission Date: 20151125
  Serious: No
  Sender: FDA-Public Use
  Company Number: US-ELI_LILLY_AND_COMPANY-US201002003292

PATIENT
  Age: 10 Year
  Sex: Male
  Weight: 45.35 kg

DRUGS (1)
  1. STRATTERA [Suspect]
     Active Substance: ATOMOXETINE HYDROCHLORIDE
     Indication: ATTENTION DEFICIT/HYPERACTIVITY DISORDER
     Dosage: 25 MG, UNKNOWN
     Route: 065
     Dates: start: 20100201, end: 20100204

REACTIONS (2)
  - Delusional disorder, unspecified type [Unknown]
  - Disorientation [Unknown]

NARRATIVE: CASE EVENT DATE: 20100203
